FAERS Safety Report 7906990-4 (Version None)
Quarter: 2011Q4

REPORT INFORMATION
  Report Type: 
  Country: None (occurrence: None)
  Receive Date: 20111110
  Receipt Date: 20111103
  Transmission Date: 20120403
  Serious: Yes (Other)
  Sender: FDA-Public Use
  Company Number: US-PFIZER INC-2009306751

PATIENT
  Sex: Female
  Weight: 69.388 kg

DRUGS (7)
  1. LYRICA [Suspect]
     Indication: FIBROMYALGIA
     Dosage: 150 MG, AS NEEDED
     Route: 048
     Dates: start: 20081101
  2. HYDROCODONE BITARTRATE [Concomitant]
     Indication: ARTHRITIS
     Dosage: ^10/325 MG^, 6X/DAY
  3. PROMETHAZINE [Concomitant]
     Indication: NAUSEA
     Dosage: UNK
  4. TRAZODONE [Concomitant]
     Indication: INSOMNIA
     Dosage: UNK
  5. METHADONE HCL [Suspect]
     Indication: DRUG ABUSE
     Dosage: UNK
     Dates: start: 20090101, end: 20090101
  6. XANAX [Concomitant]
     Indication: CONVULSION
     Dosage: 4 MG, DAILY
     Route: 048
  7. HYDROXYCHLOROQUINE SULFATE [Concomitant]
     Indication: SYSTEMIC LUPUS ERYTHEMATOSUS
     Dosage: UNK

REACTIONS (14)
  - HEADACHE [None]
  - EAR INFECTION [None]
  - LOSS OF CONSCIOUSNESS [None]
  - DIPLOPIA [None]
  - WEIGHT INCREASED [None]
  - VISION BLURRED [None]
  - HEAD INJURY [None]
  - KIDNEY INFECTION [None]
  - TONGUE BITING [None]
  - ARTHRITIS [None]
  - WEIGHT DECREASED [None]
  - GRAND MAL CONVULSION [None]
  - SYSTEMIC LUPUS ERYTHEMATOSUS [None]
  - FALL [None]
